FAERS Safety Report 7746868-2 (Version None)
Quarter: 2011Q3

REPORT INFORMATION
  Report Type: 
  Country: None (occurrence: None)
  Receive Date: 20110908
  Receipt Date: 20110831
  Transmission Date: 20111222
  Serious: Yes (Other)
  Sender: FDA-Public Use
  Company Number: 1000023436

PATIENT
  Age: 73 Year
  Sex: Female

DRUGS (10)
  1. LISINOPRIL [Concomitant]
  2. PANTOPRAZOL (PANTOPRAZOLE SODIUM SESQUIHYDRATE) [Concomitant]
  3. METOPROLOL SUCCINATE [Concomitant]
  4. MEMANTINE [Suspect]
     Indication: DEMENTIA
     Dosage: 20 MG (20 MG, 1 IN 1 D), ORAL
     Route: 048
     Dates: start: 20110101, end: 20110621
  5. DUOFER FOL (ASCORBIC ACID, FERROUS FUMARATE, FERROUS GLUCONATE) [Concomitant]
  6. BENERVA (THIAMINE HYDROCHLORIDE) [Concomitant]
  7. VI-DE3-TROPFEN (CHOLECALCIFEROL) [Concomitant]
  8. MEMANTINE [Suspect]
     Indication: DEMENTIA
     Dosage: 5 MG (5 MG, 1 IN 1 D), ORAL
     Route: 048
     Dates: start: 20110502, end: 20110101
  9. FELODIPIN (FELODIPIN) [Concomitant]
  10. ASPIRIN [Concomitant]

REACTIONS (2)
  - HYPERKINESIA [None]
  - AKATHISIA [None]
